FAERS Safety Report 10077347 (Version 1)
Quarter: 2014Q2

REPORT INFORMATION
  Report Type: Spontaneous
  Country: US (occurrence: US)
  Receive Date: 20140414
  Receipt Date: 20140414
  Transmission Date: 20141212
  Serious: Yes (Other)
  Sender: FDA-Public Use
  Company Number: US-PFIZER INC-2014094634

PATIENT
  Age: 35 Year
  Sex: Female

DRUGS (35)
  1. LYRICA [Suspect]
     Indication: FIBROMYALGIA
     Dosage: 75 MG, 2X/DAY
  2. LYRICA [Suspect]
     Dosage: 150 MG, 2X/DAY
  3. LYRICA [Suspect]
     Dosage: 375 MG, DAILY (150 MG PM AND 225 MG AM)
  4. LYRICA [Suspect]
     Dosage: 225 MG, 2X/DAY
  5. LYRICA [Suspect]
     Dosage: 375 MG, DAILY (150MG AM AND 225MG PM)
  6. CELEBREX [Suspect]
     Dosage: 200 MG, 2X/DAY
     Route: 048
  7. PRISTIQ [Suspect]
     Dosage: 50 MG, 1X/DAY
     Route: 048
  8. ZYRTEC [Suspect]
     Dosage: 10 MG, DAILY
  9. PLAQUENIL [Concomitant]
     Dosage: 200 MG, 1X/DAY
  10. RECLAST [Concomitant]
     Dosage: 5 MG/100 ML, 5 MG DEPENDING ON BONE MINERAL DENSITY
  11. CALCIUM WITH VITAMIN D [Concomitant]
     Dosage: 1200 MG, 1X/DAY
  12. CALCIUM WITH VITAMIN D [Concomitant]
     Dosage: 600 MG, 1X/DAY
  13. CALCIUM WITH VITAMIN D [Concomitant]
     Dosage: 1600 MG, 1X/DAY
  14. HYDROCODONE [Concomitant]
     Dosage: 1 DF, 3X/DAY (325 MG-7.5 MG TID)
  15. HYDROCODONE [Concomitant]
     Dosage: 1 DF, 2X/DAY (325- 7.5 B.I.D., )
  16. HYDROCODONE [Concomitant]
     Dosage: 1 DF, DAILY ( 7.5/325 QD )
  17. PROVIGIL [Concomitant]
     Dosage: 200 MG 2 TAB(S) IN A.M. AND 1 TAB AT P.M BID
  18. SEASONIQUE [Concomitant]
     Dosage: 0.15 MG/0.03 MG, DAILY
  19. LIDODERM PATCH [Concomitant]
     Dosage: 5% 5% FILM 1 PATCH, ONCE DAILY
  20. DESONIDE [Concomitant]
     Dosage: 0.05% APPLY TO THE AFFECTED AREA AS DIRECTED
  21. RESTORIL [Concomitant]
     Dosage: 7.5 MG, 1X/DAY
  22. TEMAZEPAM [Concomitant]
     Dosage: 7.5 MG, 1X/DAY
  23. KETAMINE [Concomitant]
     Dosage: 3-4 TIMES A DAY
  24. BACLOFEN [Concomitant]
     Dosage: 3-4 TIMES A DAY
  25. DICLOFENAC [Concomitant]
     Dosage: 3-4 TIMES A DAY
  26. GABAPENTIN [Concomitant]
     Dosage: 3-4 TIMES A DAY
  27. TETRACAINE [Concomitant]
     Dosage: 3-4 TIMES A DAY
  28. LYSINE [Concomitant]
     Dosage: 1000 MG, DAILY (500 MG, 2 TAB QD)
  29. VERAMYST [Concomitant]
     Dosage: 27.5 MCG/INH 1 SPRAY(S) ONCE A DAY
  30. PATANASE [Concomitant]
     Dosage: 665 MCG/INH SPRAY 2 SPRAY(S) 2 TIMES A DAY
  31. VITAMIN C [Concomitant]
     Dosage: 500 MG, 1X/DAY
  32. CLOBETASOL 0.05% [Concomitant]
     Dosage: 1 APP, 2X/DAY
  33. TRIAMCINOLONE [Concomitant]
     Dosage: 1 MG, AS NEEDED
  34. IBUPROFEN [Concomitant]
     Dosage: 400 MG, 2 TAB(S) TID
  35. DEXILANT [Concomitant]
     Dosage: 60 MG, DAILY

REACTIONS (22)
  - Spinal disorder [Unknown]
  - Undifferentiated connective tissue disease [Unknown]
  - Osteoporosis [Unknown]
  - Osteopenia [Unknown]
  - Weight increased [Unknown]
  - Rash [Recovering/Resolving]
  - Dermatitis [Recovering/Resolving]
  - Diarrhoea [Unknown]
  - Defaecation urgency [Unknown]
  - Dyspepsia [Unknown]
  - Constipation [Unknown]
  - Muscle spasms [Unknown]
  - Hypoaesthesia [Unknown]
  - Pain in extremity [Unknown]
  - Aphthous stomatitis [Recovering/Resolving]
  - Blood alkaline phosphatase increased [Unknown]
  - Alanine aminotransferase increased [Unknown]
  - Aspartate aminotransferase increased [Unknown]
  - Blood sodium increased [Unknown]
  - Drug effect incomplete [Unknown]
  - Photophobia [Recovering/Resolving]
  - Headache [Recovering/Resolving]
